FAERS Safety Report 4365002-2 (Version None)
Quarter: 2004Q2

REPORT INFORMATION
  Report Type: 
  Country: None (occurrence: None)
  Receive Date: 20040521
  Receipt Date: 20040512
  Transmission Date: 20050107
  Serious: Yes (Hospitalization)
  Sender: FDA-Public Use
  Company Number: 2004032055

PATIENT
  Age: 4 Day
  Sex: Female

DRUGS (2)
  1. VIRACEPT [Suspect]
     Indication: ILL-DEFINED DISORDER
     Dosage: ORAL
     Route: 048
     Dates: start: 20030715, end: 20030922
  2. ZIDOVUDINE W/LAMIVUDINE (LAMIVUDINE, ZIDOVUDINE) [Suspect]
     Indication: ILL-DEFINED DISORDER
     Dosage: ORAL
     Route: 048
     Dates: start: 20030715, end: 20030922

REACTIONS (5)
  - ANAEMIA NEONATAL [None]
  - DRUG EXPOSURE DURING PREGNANCY [None]
  - FAECES DISCOLOURED [None]
  - FAECES PALE [None]
  - NEONATAL DISORDER [None]
